FAERS Safety Report 11965202 (Version 1)
Quarter: 2016Q1

REPORT INFORMATION
  Report Type: Spontaneous
  Country: CZ (occurrence: CZ)
  Receive Date: 20160127
  Receipt Date: 20160127
  Transmission Date: 20160526
  Serious: Yes (Death, Hospitalization, Other)
  Sender: FDA-Public Use
  Company Number: CZ-TEVA-628263ISR

PATIENT
  Age: 59 Year
  Sex: Male

DRUGS (3)
  1. VINBLASTINE [Suspect]
     Active Substance: VINBLASTINE
     Indication: METASTATIC MALIGNANT MELANOMA
  2. DACARBAZINE. [Suspect]
     Active Substance: DACARBAZINE
     Indication: METASTATIC MALIGNANT MELANOMA
  3. CISPLATIN. [Suspect]
     Active Substance: CISPLATIN
     Indication: METASTATIC MALIGNANT MELANOMA

REACTIONS (4)
  - Brain injury [Fatal]
  - Loss of consciousness [Unknown]
  - Head injury [Fatal]
  - Haemorrhage intracranial [Unknown]

NARRATIVE: CASE EVENT DATE: 201012
